FAERS Safety Report 6189600-9 (Version None)
Quarter: 2009Q2

REPORT INFORMATION
  Report Type: 
  Country: None (occurrence: None)
  Receive Date: 20090512
  Receipt Date: 20090512
  Transmission Date: 20091009
  Serious: Yes (Hospitalization)
  Sender: FDA-Public Use
  Company Number: None

PATIENT
  Age: 75 Year
  Sex: Female
  Weight: 72.6 kg

DRUGS (10)
  1. CYCLOPHOSPHAMIDE [Suspect]
     Indication: BREAST CANCER
     Dosage: 600MG/M2 WEEKLY IV
     Route: 042
  2. ADRIAMYCIN RDF [Suspect]
     Indication: BREAST CANCER
     Dosage: 60MG/M2 WEEKLY IV
     Route: 042
  3. PREDNISONE [Concomitant]
  4. HYDROCHLOROQUINE [Concomitant]
  5. PROTONIX [Concomitant]
  6. SYNTHROID [Concomitant]
  7. CELEXA [Concomitant]
  8. CELEBREX [Concomitant]
  9. ACTONEL [Concomitant]
  10. FOREX [Concomitant]

REACTIONS (4)
  - ANAEMIA [None]
  - CULTURE POSITIVE [None]
  - STAPHYLOCOCCAL INFECTION [None]
  - URINARY TRACT INFECTION [None]
